FAERS Safety Report 14366001 (Version 1)
Quarter: 2018Q1

REPORT INFORMATION
  Report Type: Spontaneous
  Country: GB (occurrence: GB)
  Receive Date: 20180109
  Receipt Date: 20180109
  Transmission Date: 20180509
  Serious: Yes (Congenital Anomaly, Other)
  Sender: FDA-Public Use
  Company Number: GB-TEVA-2018-GB-843638

PATIENT
  Age: 0 Day
  Sex: Female

DRUGS (1)
  1. SODIUM VALPROATE [Suspect]
     Active Substance: VALPROATE SODIUM
     Indication: FOETAL EXPOSURE TIMING UNSPECIFIED
     Route: 064

REACTIONS (6)
  - Foetal exposure during pregnancy [Unknown]
  - Hypoacusis [Unknown]
  - Mobility decreased [Unknown]
  - Foetal anticonvulsant syndrome [Unknown]
  - Aphasia [Unknown]
  - Growth retardation [Unknown]
